FAERS Safety Report 6480794-4 (Version None)
Quarter: 2009Q4

REPORT INFORMATION
  Report Type: 
  Country: None (occurrence: None)
  Receive Date: 20091208
  Receipt Date: 20091106
  Transmission Date: 20100525
  Serious: Yes (Death, Hospitalization)
  Sender: FDA-Public Use
  Company Number: JP-SANOFI-AVENTIS-F01200900881

PATIENT
  Age: 86 Year
  Sex: Male
  Weight: 51 kg

DRUGS (7)
  1. CLOPIDOGREL BISULFATE [Suspect]
     Indication: ACUTE CORONARY SYNDROME
     Route: 048
     Dates: start: 20080417, end: 20090128
  2. CLOPIDOGREL BISULFATE [Suspect]
     Indication: ANGINA UNSTABLE
     Route: 048
     Dates: start: 20080417, end: 20090128
  3. ASPIRIN [Concomitant]
     Indication: ANGINA UNSTABLE
     Route: 048
     Dates: start: 20080417, end: 20090119
  4. TORASEMIDE [Concomitant]
     Route: 048
     Dates: start: 20080407, end: 20090119
  5. EPLERENONE [Concomitant]
     Route: 048
     Dates: start: 20080407, end: 20090119
  6. MICARDIS [Concomitant]
     Route: 048
     Dates: start: 20080407, end: 20090119
  7. GASTER [Concomitant]
     Route: 048
     Dates: start: 20080407, end: 20090119

REACTIONS (2)
  - ANAEMIA [None]
  - RENAL FAILURE CHRONIC [None]
